FAERS Safety Report 8316531 (Version 9)
Quarter: 2012Q4

REPORT INFORMATION
  Report Type: 
  Country: US (occurrence: US)
  Receive Date: 20111230
  Receipt Date: 20121231
  Transmission Date: 20130627
  Serious: Yes (Hospitalization)
  Sender: FDA-Public Use
  Company Number: US-BIOGENIDEC-2011BI048601

PATIENT
  Age: 48 Year
  Sex: Female

DRUGS (9)
  1. AVONEX [Suspect]
     Indication: MULTIPLE SCLEROSIS
     Route: 030
     Dates: start: 20111221, end: 20120101
  2. AVONEX [Suspect]
     Indication: MULTIPLE SCLEROSIS
     Route: 030
     Dates: start: 20121026, end: 20121026
  3. AVONEX [Suspect]
     Indication: MULTIPLE SCLEROSIS
     Route: 030
     Dates: start: 20121102, end: 20121102
  4. AVONEX [Suspect]
     Indication: MULTIPLE SCLEROSIS
     Route: 030
     Dates: start: 20121109, end: 20121109
  5. AVONEX [Suspect]
     Indication: MULTIPLE SCLEROSIS
     Route: 030
     Dates: start: 20121116, end: 20121116
  6. AVONEX [Suspect]
     Indication: MULTIPLE SCLEROSIS
     Route: 030
     Dates: start: 20121123, end: 20121130
  7. TYLENOL [Concomitant]
     Indication: PREMEDICATION
  8. IBUPROFEN [Concomitant]
     Indication: PREMEDICATION
  9. REMICADE [Concomitant]
     Indication: CROHN^S DISEASE

REACTIONS (17)
  - Nephrolithiasis [Recovered/Resolved]
  - Urosepsis [Recovered/Resolved]
  - Ureteric obstruction [Recovered/Resolved]
  - Hypoaesthesia [Recovered/Resolved]
  - Kidney infection [Unknown]
  - Multiple sclerosis [Unknown]
  - Crohn^s disease [Recovered/Resolved]
  - Paralysis [Recovered/Resolved]
  - Hemiparesis [Unknown]
  - Cyst [Recovered/Resolved]
  - Eye infection [Recovered/Resolved]
  - Oedema peripheral [Recovered/Resolved]
  - Pruritus [Recovered/Resolved]
  - Alopecia [Not Recovered/Not Resolved]
  - Pain [Recovered/Resolved]
  - Pyrexia [Recovered/Resolved]
  - Asthenia [Unknown]
